FAERS Safety Report 9668411 (Version 1)
Quarter: 2013Q4

REPORT INFORMATION
  Report Type: Spontaneous
  Country: GB (occurrence: GB)
  Receive Date: 20131104
  Receipt Date: 20131104
  Transmission Date: 20140711
  Serious: Yes (Other)
  Sender: FDA-Public Use
  Company Number: GB-ROCHE-1294865

PATIENT
  Age: 51 Year
  Sex: Male
  Weight: 91 kg

DRUGS (8)
  1. COPEGUS [Suspect]
     Indication: HEPATITIS C
     Route: 048
     Dates: start: 20130616, end: 20130802
  2. ARIPIPRAZOLE [Concomitant]
  3. DIAZEPAM [Concomitant]
     Route: 065
  4. INTERFERON ALFA-2A [Concomitant]
     Route: 065
  5. MIRTAZAPINE [Concomitant]
  6. OMEPRAZOLE [Concomitant]
  7. TERBUTALINE [Concomitant]
  8. TIOTROPIUM [Concomitant]

REACTIONS (4)
  - Blister [Recovered/Resolved]
  - Dermatitis bullous [Recovered/Resolved]
  - Impetigo [Recovered/Resolved]
  - Orbital oedema [Recovered/Resolved]
